FAERS Safety Report 8032876-3 (Version None)
Quarter: 2012Q1

REPORT INFORMATION
  Report Type: 
  Country: None (occurrence: None)
  Receive Date: 20120110
  Receipt Date: 20120103
  Transmission Date: 20120608
  Serious: Yes (Hospitalization)
  Sender: FDA-Public Use
  Company Number: NL-PFIZER INC-2012004640

PATIENT
  Age: 51 Year
  Sex: Female

DRUGS (2)
  1. FLUCLOXACILLIN [Suspect]
     Indication: ENDOCARDITIS
     Dosage: 500 MG, UNK
     Dates: start: 20111108, end: 20111209
  2. PANTOPRAZOLE [Suspect]
     Dosage: 20 MG, 1X/DAY
     Route: 048
     Dates: start: 20111108, end: 20111212

REACTIONS (1)
  - AGRANULOCYTOSIS [None]
